FAERS Safety Report 6643526-2 (Version None)
Quarter: 2010Q1

REPORT INFORMATION
  Report Type: 
  Country: None (occurrence: None)
  Receive Date: 20100320
  Receipt Date: 20100305
  Transmission Date: 20100710
  Serious: No
  Sender: FDA-Public Use
  Company Number: US-ROXANE LABORATORIES, INC.-2010-RO-00306RO

PATIENT
  Sex: Male

DRUGS (2)
  1. BUTORPHANOL TARTRATE [Suspect]
     Indication: PAIN
     Route: 045
  2. BUTORPHANOL TARTRATE [Suspect]
     Indication: HEADACHE

REACTIONS (1)
  - RHINALGIA [None]
